FAERS Safety Report 8111317 (Version 2)
Quarter: 2013Q1

REPORT INFORMATION
  Report Type: Spontaneous
  Country: US (occurrence: US)
  Receive Date: 20110829
  Receipt Date: 20130108
  Transmission Date: 20140127
  Serious: Yes (Hospitalization)
  Sender: FDA-Public Use
  Company Number: US-GLAXOSMITHKLINE-A0928799A

PATIENT
  Age: 41 Year
  Sex: Female
  Weight: 90.5 kg

DRUGS (1)
  1. AVANDIA [Suspect]
     Indication: DIABETES MELLITUS
     Route: 048
     Dates: start: 20000420, end: 20020214

REACTIONS (5)
  - Angina unstable [Not Recovered/Not Resolved]
  - Chest pain [Unknown]
  - Catheterisation cardiac [Unknown]
  - Coronary artery bypass [Unknown]
  - Stent placement [Unknown]
